FAERS Safety Report 16757793 (Version 3)
Quarter: 2019Q4

REPORT INFORMATION
  Report Type: Spontaneous
  Country: US (occurrence: US)
  Receive Date: 20190830
  Receipt Date: 20191010
  Transmission Date: 20200122
  Serious: Yes (Other)
  Sender: FDA-Public Use
  Company Number: US-GILEAD-2019-0425629

PATIENT
  Age: 46 Year
  Sex: Male

DRUGS (1)
  1. TRUVADA [Suspect]
     Active Substance: EMTRICITABINE\TENOFOVIR DISOPROXIL FUMARATE
     Indication: PRODUCT USED FOR UNKNOWN INDICATION
     Dosage: UNK
     Route: 065
     Dates: start: 2013, end: 2016

REACTIONS (7)
  - Bone loss [Unknown]
  - Bone deformity [Not Recovered/Not Resolved]
  - Protein total decreased [Unknown]
  - Bone swelling [Unknown]
  - Swelling [Not Recovered/Not Resolved]
  - Blood creatine decreased [Unknown]
  - Renal failure [Unknown]

NARRATIVE: CASE EVENT DATE: 2013
